FAERS Safety Report 11933681 (Version 1)
Quarter: 2016Q1

REPORT INFORMATION
  Report Type: Spontaneous
  Country: US (occurrence: US)
  Receive Date: 20160121
  Receipt Date: 20160121
  Transmission Date: 20160526
  Serious: No
  Sender: FDA-Public Use
  Company Number: US-DRREDDYS-USA/USA/15/0053957

PATIENT
  Sex: Female

DRUGS (3)
  1. ZENATANE [Suspect]
     Active Substance: ISOTRETINOIN
     Route: 065
     Dates: start: 201509, end: 20151102
  2. ZENATANE [Suspect]
     Active Substance: ISOTRETINOIN
     Indication: SEBACEOUS HYPERPLASIA
     Route: 065
     Dates: start: 20150416
  3. METOPROLOL. [Concomitant]
     Active Substance: METOPROLOL
     Indication: PRODUCT USED FOR UNKNOWN INDICATION
     Route: 065

REACTIONS (4)
  - Dizziness [Unknown]
  - Off label use [Unknown]
  - Headache [Unknown]
  - Arthralgia [Unknown]
